FAERS Safety Report 7704098-4 (Version None)
Quarter: 2011Q3

REPORT INFORMATION
  Report Type: 
  Country: None (occurrence: None)
  Receive Date: 20110818
  Receipt Date: 20110815
  Transmission Date: 20111222
  Serious: Yes (Hospitalization)
  Sender: FDA-Public Use
  Company Number: DAV-AE-MTX-11-043

PATIENT
  Age: 67 Year
  Sex: Female

DRUGS (6)
  1. ABATACEPT [Concomitant]
  2. INDOMETACIN [Concomitant]
  3. PREDNISOLINE [Concomitant]
  4. FOLIC ACID [Concomitant]
  5. METHOTREXATE [Suspect]
     Indication: RHEUMATOID ARTHRITIS
     Dosage: 4MG/WK
  6. REBAMIPIDE [Concomitant]

REACTIONS (2)
  - PAIN [None]
  - HERPES ZOSTER [None]
